FAERS Safety Report 6387746-3 (Version None)
Quarter: 2009Q4

REPORT INFORMATION
  Report Type: 
  Country: None (occurrence: None)
  Receive Date: 20091005
  Receipt Date: 20090929
  Transmission Date: 20100525
  Serious: Yes (Other)
  Sender: FDA-Public Use
  Company Number: US-BRISTOL-MYERS SQUIBB COMPANY-14791909

PATIENT
  Age: 52 Year
  Sex: Female
  Weight: 118 kg

DRUGS (3)
  1. COUMADIN [Suspect]
     Dates: end: 20080101
  2. LOVENOX [Concomitant]
     Indication: DEEP VEIN THROMBOSIS
  3. LOVENOX [Concomitant]
     Indication: PULMONARY EMBOLISM

REACTIONS (2)
  - DEEP VEIN THROMBOSIS [None]
  - PULMONARY EMBOLISM [None]
